FAERS Safety Report 6198030-5 (Version None)
Quarter: 2009Q2

REPORT INFORMATION
  Report Type: 
  Country: None (occurrence: None)
  Receive Date: 20090515
  Receipt Date: 20090213
  Transmission Date: 20091009
  Serious: No
  Sender: FDA-Public Use
  Company Number: WAES 0803USA03554

PATIENT
  Age: 76 Year
  Sex: Female

DRUGS (2)
  1. ZOLINZA [Suspect]
     Indication: MYCOSIS FUNGOIDES
     Dosage: 400 MG/DAILY/PO
     Route: 048
     Dates: start: 20080305
  2. THERAPY UNSPECIFIED [Concomitant]

REACTIONS (7)
  - ALOPECIA [None]
  - CHILLS [None]
  - DYSGEUSIA [None]
  - EYE SWELLING [None]
  - OCULAR HYPERAEMIA [None]
  - RASH [None]
  - SKIN EXFOLIATION [None]
